FAERS Safety Report 12885041 (Version 1)
Quarter: 2016Q4

REPORT INFORMATION
  Report Type: Spontaneous
  Country: MX (occurrence: MX)
  Receive Date: 20161026
  Receipt Date: 20161026
  Transmission Date: 20170207
  Serious: Yes (Disabling, Other)
  Sender: FDA-Public Use
  Company Number: MX-BAYER-2016-202947

PATIENT
  Age: 73 Year
  Sex: Male

DRUGS (8)
  1. STIVARGA [Concomitant]
     Active Substance: REGORAFENIB
     Indication: COLORECTAL CANCER
     Dosage: 4 DF, QD
     Route: 048
     Dates: start: 20160815
  2. IMODIUM [Concomitant]
     Active Substance: LOPERAMIDE HYDROCHLORIDE
     Indication: DIARRHOEA
     Dosage: 2 DF, PRN
  3. NEXAVAR [Suspect]
     Active Substance: SORAFENIB
     Indication: HEPATOCELLULAR CARCINOMA
     Dosage: 2 DF, BID
     Dates: start: 20140622, end: 20160808
  4. TRAMCET [Concomitant]
     Active Substance: ACETAMINOPHEN\TRAMADOL
     Dosage: 1 DF, BID
  5. SECOTEX [Concomitant]
     Active Substance: TAMSULOSIN
     Dosage: 1 DF, QD
  6. SHIPHNOS [Concomitant]
     Dosage: 1 DF, BID
  7. LOSEC [Concomitant]
     Active Substance: OMEPRAZOLE
     Dosage: 1 DF, BID
  8. DILACORAN [Concomitant]
     Active Substance: VERAPAMIL HYDROCHLORIDE
     Dosage: 1 DF, QD

REACTIONS (8)
  - Hiatus hernia [Not Recovered/Not Resolved]
  - Hepatocellular carcinoma [Not Recovered/Not Resolved]
  - Gastrointestinal tract adenoma [Not Recovered/Not Resolved]
  - Drug resistance [Not Recovered/Not Resolved]
  - Drug ineffective [Not Recovered/Not Resolved]
  - Colon cancer [Not Recovered/Not Resolved]
  - Umbilical hernia [Not Recovered/Not Resolved]
  - Haemorrhoids [Not Recovered/Not Resolved]

NARRATIVE: CASE EVENT DATE: 20160808
